FAERS Safety Report 8869471 (Version 1)
Quarter: 2012Q4

REPORT INFORMATION
  Report Type: 
  Country: RO (occurrence: RO)
  Receive Date: 20121026
  Receipt Date: 20121026
  Transmission Date: 20130627
  Serious: Yes (Other)
  Sender: FDA-Public Use
  Company Number: RO-ASTRAZENECA-2012SE79707

PATIENT
  Age: 52 Year
  Sex: Female
  Weight: 65 kg

DRUGS (4)
  1. VIMOVO [Suspect]
     Indication: INTERVERTEBRAL DISC DISORDER
     Route: 048
     Dates: start: 201203, end: 201206
  2. VIMOVO [Suspect]
     Indication: FIBROMYALGIA
     Route: 048
     Dates: start: 201203, end: 201206
  3. ALANERV [Concomitant]
     Indication: CERVICOBRACHIAL SYNDROME
     Route: 048
  4. MYDOCALM [Concomitant]
     Route: 048

REACTIONS (1)
  - Transaminases increased [Recovering/Resolving]
